FAERS Safety Report 4385871-X (Version None)
Quarter: 2004Q2

REPORT INFORMATION
  Report Type: 
  Country: None (occurrence: None)
  Receive Date: 20040628
  Receipt Date: 20040604
  Transmission Date: 20050107
  Serious: Yes (Hospitalization)
  Sender: FDA-Public Use
  Company Number: US-GLAXOSMITHKLINE-A0513449A

PATIENT
  Age: 64 Year
  Sex: Female

DRUGS (5)
  1. PAXIL [Suspect]
     Dosage: 40MG PER DAY
     Route: 048
     Dates: start: 19990101
  2. PAROXETINE HCL [Suspect]
     Route: 045
  3. ATIVAN [Concomitant]
  4. XANAX [Concomitant]
  5. BLOOD THINNER [Concomitant]

REACTIONS (7)
  - AGITATION [None]
  - COMA [None]
  - EYELID FUNCTION DISORDER [None]
  - INCOHERENT [None]
  - INFECTION [None]
  - PYREXIA [None]
  - TINNITUS [None]
